FAERS Safety Report 8938904 (Version 1)
Quarter: 2012Q4

REPORT INFORMATION
  Report Type: 
  Country: GB (occurrence: GB)
  Receive Date: 20121203
  Receipt Date: 20121203
  Transmission Date: 20130627
  Serious: Yes (Other)
  Sender: FDA-Public Use
  Company Number: GB-EISAI INC-E7389-03278-SPO-GB

PATIENT
  Age: 54 Year
  Sex: Female
  Weight: 68 kg

DRUGS (3)
  1. HALAVEN [Suspect]
     Indication: BREAST CANCER METASTATIC
     Dosage: UNKNOWN
     Route: 041
     Dates: start: 20120821
  2. EXEMESTANE [Concomitant]
     Route: 065
  3. ZOLEDRONIC ACID [Concomitant]
     Route: 065

REACTIONS (2)
  - Partial seizures [Recovering/Resolving]
  - Type 1 diabetes mellitus [Recovering/Resolving]
